FAERS Safety Report 21858415 (Version 1)
Quarter: 2023Q1

REPORT INFORMATION
  Report Type: Spontaneous
  Country: US (occurrence: US)
  Receive Date: 20230113
  Receipt Date: 20230113
  Transmission Date: 20230418
  Serious: Yes (Hospitalization, Other)
  Sender: FDA-Public Use
  Company Number: US-LUPIN PHARMACEUTICALS INC.-2023-00147

PATIENT
  Age: 57 Year
  Sex: Male

DRUGS (6)
  1. LORAZEPAM [Suspect]
     Active Substance: LORAZEPAM
     Indication: Catatonia
     Dosage: 6 MG, QD
     Route: 065
  2. LORAZEPAM [Suspect]
     Active Substance: LORAZEPAM
     Dosage: 1 MG, QD
     Route: 065
  3. DIVALPROEX SODIUM [Suspect]
     Active Substance: DIVALPROEX SODIUM
     Indication: Catatonia
     Dosage: UNK
     Route: 065
  4. MEMANTINE [Suspect]
     Active Substance: MEMANTINE
     Indication: Catatonia
     Dosage: UNK
     Route: 065
  5. LURASIDONE [Concomitant]
     Active Substance: LURASIDONE
     Indication: Bipolar disorder
     Dosage: 40 MG, QD
     Route: 065
  6. LURASIDONE [Concomitant]
     Active Substance: LURASIDONE
     Dosage: 60 MG, QD
     Route: 065

REACTIONS (2)
  - Bradycardia [Unknown]
  - Off label use [Unknown]
